FAERS Safety Report 19256242 (Version 1)
Quarter: 2021Q2

REPORT INFORMATION
  Report Type: Report from Study
  Country: US (occurrence: US)
  Receive Date: 20210513
  Receipt Date: 20210513
  Transmission Date: 20210717
  Serious: Yes (Other)
  Sender: FDA-Public Use
  Company Number: US-GLAXOSMITHKLINE-US2021AMR028339

PATIENT
  Sex: Female

DRUGS (6)
  1. NIRAPARIB [Suspect]
     Active Substance: NIRAPARIB
     Dosage: 200 MG, QD
     Dates: start: 202010
  2. NIRAPARIB [Suspect]
     Active Substance: NIRAPARIB
     Dosage: UNK, 100 MG ALTERNATING WITH 200 MG QD
  3. NIRAPARIB [Suspect]
     Active Substance: NIRAPARIB
     Dosage: 200 MG, QD
     Route: 048
  4. NIRAPARIB [Suspect]
     Active Substance: NIRAPARIB
     Dosage: 200 MG, QD
     Dates: start: 202103
  5. NIRAPARIB [Suspect]
     Active Substance: NIRAPARIB
     Dosage: 100 MG, QD
  6. NIRAPARIB [Suspect]
     Active Substance: NIRAPARIB
     Indication: OVARIAN CANCER
     Dosage: UNK (TAKING AN ALTERNATE DOSING)

REACTIONS (9)
  - Laboratory test abnormal [Unknown]
  - Carbohydrate antigen 125 increased [Recovering/Resolving]
  - Vomiting [Unknown]
  - Hospice care [Not Recovered/Not Resolved]
  - Malignant neoplasm progression [Unknown]
  - Abdominal cavity drainage [Unknown]
  - Nausea [Unknown]
  - Abdominal pain [Unknown]
  - Inappropriate schedule of product administration [Unknown]
